FAERS Safety Report 19359166 (Version 1)
Quarter: 2021Q2

REPORT INFORMATION
  Report Type: Spontaneous
  Country: US (occurrence: US)
  Receive Date: 20210602
  Receipt Date: 20210602
  Transmission Date: 20210717
  Serious: No
  Sender: FDA-Public Use
  Company Number: US-DENDREON PHARMACEUTICAL LLC-2021DEN000003

PATIENT
  Age: 76 Year
  Sex: Male

DRUGS (4)
  1. APALUTAMIDE [Concomitant]
     Active Substance: APALUTAMIDE
  2. PROVENGE [Suspect]
     Active Substance: SIPULEUCEL-T
     Indication: PROSTATE CANCER METASTATIC
     Dosage: DOSE # 1
     Route: 042
     Dates: start: 20201210, end: 20201210
  3. FIRMAGON [Concomitant]
     Active Substance: DEGARELIX ACETATE
  4. XGEVA [Concomitant]
     Active Substance: DENOSUMAB

REACTIONS (1)
  - Urinary tract infection [Recovering/Resolving]

NARRATIVE: CASE EVENT DATE: 20201227
